FAERS Safety Report 24694906 (Version 1)
Quarter: 2024Q4

REPORT INFORMATION
  Report Type: Spontaneous
  Country: US (occurrence: None)
  Receive Date: 20241203
  Receipt Date: 20241203
  Transmission Date: 20250114
  Serious: Yes (Life-Threatening, Hospitalization)
  Sender: Public
  Company Number: None

PATIENT
  Age: 66 Year
  Sex: Female
  Weight: 92 kg

DRUGS (2)
  1. RISPERIDONE [Suspect]
     Active Substance: RISPERIDONE
     Indication: Psychotic disorder
     Dosage: 3.00 MG AT BEDTIME ORAL
     Route: 048
  2. PERPHENAZINE [Suspect]
     Active Substance: PERPHENAZINE

REACTIONS (7)
  - Hyponatraemia [None]
  - Hypomagnesaemia [None]
  - Sepsis [None]
  - Product administration error [None]
  - Hypophagia [None]
  - Inappropriate antidiuretic hormone secretion [None]
  - Dyspnoea [None]

NARRATIVE: CASE EVENT DATE: 20240924
